FAERS Safety Report 9743297 (Version 1)
Quarter: 2013Q4

REPORT INFORMATION
  Report Type: Spontaneous
  Country: US (occurrence: US)
  Receive Date: 20131210
  Receipt Date: 20131210
  Transmission Date: 20140711
  Serious: No
  Sender: FDA-Public Use
  Company Number: US-GILEAD-2009-0025624

PATIENT
  Sex: Female
  Weight: 72.57 kg

DRUGS (9)
  1. LETAIRIS [Suspect]
     Indication: PULMONARY ARTERIAL HYPERTENSION
     Route: 048
     Dates: start: 20081211
  2. DOXEPIN [Concomitant]
  3. ASPIRIN [Concomitant]
  4. DIGITEK [Concomitant]
  5. CALTRATE [Concomitant]
  6. ALTACE [Concomitant]
  7. OXYCODONE/APAP [Concomitant]
  8. VESICARE [Concomitant]
  9. TOPROL XL [Concomitant]

REACTIONS (2)
  - Fluid retention [Unknown]
  - Local swelling [Unknown]
